FAERS Safety Report 10665164 (Version 1)
Quarter: 2014Q4

REPORT INFORMATION
  Report Type: Report from Study
  Country: US (occurrence: US)
  Receive Date: 20141219
  Receipt Date: 20141219
  Transmission Date: 20150529
  Serious: Yes (Hospitalization, Other)
  Sender: FDA-Public Use
  Company Number: US-ABBVIE-14K-163-1319905-00

PATIENT
  Sex: Male

DRUGS (1)
  1. HUMIRA [Suspect]
     Active Substance: ADALIMUMAB
     Indication: CROHN^S DISEASE
     Route: 065
     Dates: end: 2014

REACTIONS (3)
  - Psoas abscess [Recovering/Resolving]
  - Fistula [Recovering/Resolving]
  - Small intestinal resection [Recovering/Resolving]

NARRATIVE: CASE EVENT DATE: 2014
